FAERS Safety Report 12337913 (Version 1)
Quarter: 2016Q2

REPORT INFORMATION
  Report Type: Report from Study
  Country: US (occurrence: US)
  Receive Date: 20160505
  Receipt Date: 20160505
  Transmission Date: 20160815
  Serious: No
  Sender: FDA-Public Use
  Company Number: ADR-2015-01273

PATIENT
  Age: 66 Year
  Sex: Male

DRUGS (4)
  1. BUPIVACAINE. [Suspect]
     Active Substance: BUPIVACAINE
     Dosage: 5.295 MG/DAY
     Route: 037
     Dates: start: 20150527
  2. CLONIDINE. [Suspect]
     Active Substance: CLONIDINE
     Dosage: 132.38 MCG/DAY
     Route: 037
     Dates: start: 20150527
  3. COMPOUNDED BACLOFEN [Suspect]
     Active Substance: BACLOFEN
     Dosage: 264.8 MCG/DAY
     Route: 037
     Dates: start: 20150527
  4. MORPHINE [Suspect]
     Active Substance: MORPHINE
     Dosage: 3.971 MG/DAY
     Route: 037
     Dates: start: 20150527

REACTIONS (5)
  - Sedation [Recovered/Resolved]
  - Fall [Recovered/Resolved]
  - Medical device site haemorrhage [Recovered/Resolved]
  - Suture related complication [Recovered/Resolved]
  - Medical device site bruise [Recovered/Resolved]

NARRATIVE: CASE EVENT DATE: 20150530
